FAERS Safety Report 5512171-4 (Version None)
Quarter: 2007Q4

REPORT INFORMATION
  Report Type: 
  Country: None (occurrence: None)
  Receive Date: 20071112
  Receipt Date: 20071101
  Transmission Date: 20080405
  Serious: Yes (Hospitalization)
  Sender: FDA-Public Use
  Company Number: PHBS2007NO18367

PATIENT
  Age: 75 Year
  Sex: Male

DRUGS (8)
  1. VOLTAREN [Suspect]
     Indication: RHEUMATOID ARTHRITIS
     Dosage: 50 MG, TID
     Dates: end: 20071001
  2. METHOTREXATE [Suspect]
     Indication: RHEUMATOID ARTHRITIS
     Dosage: 12.5 MG, QW
     Dates: end: 20071001
  3. SALAZOPYRIN [Suspect]
     Indication: RHEUMATOID ARTHRITIS
     Dosage: 500 MG, BID
     Route: 048
     Dates: end: 20070101
  4. VESICARE [Concomitant]
     Dosage: 5 MG, QD
  5. FOLIC ACID [Concomitant]
     Dosage: 1 MG/DAY
  6. ADALAT [Concomitant]
     Dosage: 30 MG, QD
  7. ZOCOR [Concomitant]
     Dosage: 20 MG, QD
  8. ALBYL-E [Concomitant]
     Indication: CORONARY ARTERY DISEASE
     Dosage: 160 MG, QD
     Route: 048

REACTIONS (12)
  - ANAEMIA [None]
  - ASTHENIA [None]
  - BODY TEMPERATURE DECREASED [None]
  - CYANOSIS [None]
  - DIZZINESS [None]
  - GENERAL PHYSICAL CONDITION ABNORMAL [None]
  - HAEMOGLOBIN DECREASED [None]
  - PALLOR [None]
  - PANCYTOPENIA [None]
  - RETICULOCYTE COUNT DECREASED [None]
  - WEIGHT DECREASED [None]
  - WHITE BLOOD CELL COUNT DECREASED [None]
